APPROVED DRUG PRODUCT: METHYLPREDNISOLONE
Active Ingredient: METHYLPREDNISOLONE
Strength: 4MG
Dosage Form/Route: TABLET;ORAL
Application: A040232 | Product #001 | TE Code: AB
Applicant: WATSON LABORATORIES INC
Approved: Oct 16, 1997 | RLD: No | RS: No | Type: RX